FAERS Safety Report 4328115-7 (Version None)
Quarter: 2004Q1

REPORT INFORMATION
  Report Type: 
  Country: None (occurrence: None)
  Receive Date: 20040325
  Receipt Date: 20040311
  Transmission Date: 20041129
  Serious: Yes (Life-Threatening, Hospitalization, Disabling, Other)
  Sender: FDA-Public Use
  Company Number: 2003008268

PATIENT
  Age: 39 Year
  Sex: Male
  Weight: 80 kg

DRUGS (3)
  1. RELERT (ELETRIPTAN) [Suspect]
     Indication: MIGRAINE
     Dosage: 40 MG (ONCE), ORAL
     Route: 048
     Dates: start: 20030126, end: 20030101
  2. RIZATRIPTAN BENZOATE (RIZATRIPTAN BENZOATE) [Suspect]
     Indication: MIGRAINE
     Dosage: 10 MG, ORAL
     Route: 048
  3. LIMBITROL (CHLORDIAZEPOXIDE, AMITRIPTYLINE HYDROCHLORIDE) [Concomitant]

REACTIONS (8)
  - BALANCE DISORDER [None]
  - CEREBELLAR INFARCTION [None]
  - DRUG INEFFECTIVE [None]
  - DRUG INTERACTION [None]
  - NAUSEA [None]
  - PYELONEPHRITIS ACUTE [None]
  - VERTIGO [None]
  - VESTIBULAR DISORDER [None]
